FAERS Safety Report 8394498-4 (Version None)
Quarter: 2012Q2

REPORT INFORMATION
  Report Type: 
  Country: None (occurrence: None)
  Receive Date: 20120530
  Receipt Date: 20120525
  Transmission Date: 20120825
  Serious: Yes (Hospitalization, Other)
  Sender: FDA-Public Use
  Company Number: PHHY2012BR036404

PATIENT
  Age: 68 Year
  Sex: Female
  Weight: 45 kg

DRUGS (7)
  1. FOLIC ACID [Concomitant]
     Dosage: UNK UKN, UNK
  2. VITAMIN B COMPLEX CAP [Concomitant]
     Dosage: UNK UKN, UNK
  3. CAPTOPRIL [Concomitant]
     Indication: BLOOD PRESSURE
     Dosage: 25 MG, 1 TABLET IN THE MORNING AND 1 AT NIGHT
  4. FORMOTEROL FUMARATE [Suspect]
     Dosage: CAPSULE OF EACH TREATMENT 2 TIMES DAILY (IN THE MORNING AND AT NIGHT)
  5. VENALOT (COUMARIN) [Concomitant]
     Indication: POOR PERIPHERAL CIRCULATION
     Dosage: 2 TABLETS A DAY
  6. ASPIRIN [Concomitant]
     Indication: COAGULOPATHY
     Dosage: UNK UKN, UNK
  7. FORMOTEROL FUMARATE [Suspect]
     Indication: ASTHMA
     Dosage: 12/400 UG, 1 IN THE MORNING AND 2 CAPSULES OF THE TREATMENT AT NIGHT.

REACTIONS (9)
  - CARDIOPULMONARY FAILURE [None]
  - CEREBRAL ISCHAEMIA [None]
  - INSOMNIA [None]
  - INFLUENZA [None]
  - WRONG TECHNIQUE IN DRUG USAGE PROCESS [None]
  - ASTHMA [None]
  - SYNCOPE [None]
  - GASTRITIS [None]
  - RESPIRATORY ARREST [None]
